FAERS Safety Report 25595011 (Version 1)
Quarter: 2025Q3

REPORT INFORMATION
  Report Type: Spontaneous
  Country: US (occurrence: US)
  Receive Date: 20250723
  Receipt Date: 20250723
  Transmission Date: 20251021
  Serious: Yes (Other)
  Sender: AMGEN
  Company Number: US-AMGEN-USASP2025141678

PATIENT
  Sex: Male

DRUGS (3)
  1. IVABRADINE [Suspect]
     Active Substance: IVABRADINE
     Indication: Off label use
  2. IVABRADINE [Suspect]
     Active Substance: IVABRADINE
     Dosage: 0.05 MILLIGRAM/KILOGRAM, BID (THE PATIENT RECEIVED A MAINTENANCE DOSE OF IVABRADINE AT 0.05 MG/KG/ D
  3. IVABRADINE [Suspect]
     Active Substance: IVABRADINE
     Dosage: 0.025 MILLIGRAM/KILOGRAM, BID (THE IVABRADINE DOSE WAS REDUCED TO 0.025 MG/KG/DOSE TWICE DAILY)

REACTIONS (3)
  - Necrotising colitis [Unknown]
  - Bradycardia [Unknown]
  - Off label use [Unknown]
